FAERS Safety Report 17428483 (Version 1)
Quarter: 2020Q1

REPORT INFORMATION
  Report Type: Report from Study
  Country: IL (occurrence: IL)
  Receive Date: 20200217
  Receipt Date: 20200217
  Transmission Date: 20200409
  Serious: Yes (Hospitalization)
  Sender: FDA-Public Use
  Company Number: IL-BRISTOL-MYERS SQUIBB COMPANY-BMS-2020-012396

PATIENT
  Age: 80 Year
  Sex: Male

DRUGS (20)
  1. NIVOLUMAB [Suspect]
     Active Substance: NIVOLUMAB
     Indication: KAPOSI^S SARCOMA
     Dosage: 240 MILLIGRAM
     Route: 042
     Dates: start: 20191127
  2. IPILIMUMAB [Suspect]
     Active Substance: IPILIMUMAB
     Indication: KAPOSI^S SARCOMA
     Dosage: 1 MILLIGRAM/KILOGRAM
     Route: 042
     Dates: start: 20191127
  3. OXYCOD [OXYTOCIN] [Concomitant]
     Indication: PAIN
     Dosage: UNK, PRN
     Route: 048
     Dates: start: 2016, end: 20191215
  4. APIXABAN [Concomitant]
     Active Substance: APIXABAN
     Indication: ARRHYTHMIA
     Dosage: 5 MILLIGRAM, BID
     Route: 048
     Dates: start: 20191203
  5. ENSURE [NUTRIENTS NOS] [Concomitant]
     Indication: DECREASED APPETITE
     Dosage: 220 MILLILITER, QD, SOLUTION
     Route: 048
     Dates: start: 20200114, end: 20200208
  6. NERIDERM [Concomitant]
     Indication: PRURITUS
     Dosage: UNK, PRN
     Route: 061
     Dates: start: 20200101
  7. EUTHYROX [Concomitant]
     Active Substance: LEVOTHYROXINE SODIUM
     Indication: PRODUCT USED FOR UNKNOWN INDICATION
     Dosage: 50 MICROGRAM, QD
     Route: 048
     Dates: start: 20200119
  8. COMADIN [Concomitant]
     Active Substance: CLOTRIMAZOLE
     Indication: ARRHYTHMIA
     Dosage: UNK, QD
     Route: 048
     Dates: start: 1995, end: 20191126
  9. DOXYLIN [DOXYCYCLINE CALCIUM] [Concomitant]
     Indication: COUGH
     Dosage: 100 MILLIGRAM, BID
     Route: 048
     Dates: start: 20200114, end: 20200116
  10. LYCLEAR [Concomitant]
     Indication: ACARODERMATITIS
     Dosage: 1 DOSAGE FORM, QD, DERMAL
     Route: 065
     Dates: start: 20200104
  11. AUGMENTIN [Concomitant]
     Active Substance: AMOXICILLIN\CLAVULANATE POTASSIUM
     Indication: ACARODERMATITIS
     Dosage: 875 MILLIGRAM, BID
     Route: 048
     Dates: start: 20200109, end: 20200111
  12. XALATAN [Concomitant]
     Active Substance: LATANOPROST
     Indication: PRODUCT USED FOR UNKNOWN INDICATION
     Dosage: 1 DROP, QD, SOLUTION
     Route: 065
     Dates: start: 2008
  13. TASULIN [Concomitant]
     Indication: BENIGN PROSTATIC HYPERPLASIA
     Dosage: UNK, QD
     Route: 048
     Dates: start: 2010, end: 20191126
  14. COSOPT [Concomitant]
     Active Substance: DORZOLAMIDE HYDROCHLORIDE\TIMOLOL MALEATE
     Indication: PRODUCT USED FOR UNKNOWN INDICATION
     Dosage: UNK, QD
     Route: 048
     Dates: start: 2008, end: 20191126
  15. LAXADIN [Concomitant]
     Active Substance: BISACODYL
     Indication: ARRHYTHMIA
     Dosage: 5 MILLIGRAM, BID
     Route: 048
     Dates: start: 20200114, end: 20200125
  16. REOLIN [Concomitant]
     Indication: COUGH
     Dosage: 200 MILLIGRAM, QD
     Route: 065
     Dates: start: 20200114, end: 20200116
  17. XYLOVIT [Concomitant]
     Indication: NASOPHARYNGITIS
     Dosage: 3 DOSAGE FORM, TID
     Route: 045
     Dates: start: 20200114, end: 20200116
  18. TRIDERM [CLOTRIMAZOLE] [Concomitant]
     Indication: PRURITUS
     Dosage: UNK, PRN
     Route: 061
     Dates: start: 20200101
  19. FENTA [Concomitant]
     Indication: PAIN
     Dosage: UNK, DERMAL PATCH
     Route: 065
     Dates: start: 2016, end: 20191215
  20. HYOSCINE [Concomitant]
     Active Substance: SCOPOLAMINE
     Indication: PRODUCT USED FOR UNKNOWN INDICATION
     Dosage: UNK UNK, PRN
     Route: 065
     Dates: start: 201908

REACTIONS (2)
  - Hand fracture [Unknown]
  - Dizziness [Unknown]

NARRATIVE: CASE EVENT DATE: 20200208
